FAERS Safety Report 9529653 (Version 1)
Quarter: 2013Q3

REPORT INFORMATION
  Report Type: Spontaneous
  Country: ES (occurrence: ES)
  Receive Date: 20130917
  Receipt Date: 20130917
  Transmission Date: 20140515
  Serious: Yes (Other)
  Sender: FDA-Public Use
  Company Number: ES-ELI_LILLY_AND_COMPANY-ES201309003908

PATIENT
  Sex: Male

DRUGS (3)
  1. CIALIS [Suspect]
     Dosage: 20 MG, PRN
     Route: 048
     Dates: start: 2010
  2. CIALIS [Suspect]
     Dosage: 1 DF, PRN
     Route: 048
     Dates: start: 2010
  3. PERMIXON [Concomitant]
     Dosage: 1 DF, UNKNOWN

REACTIONS (3)
  - Atrial fibrillation [Unknown]
  - Overdose [Unknown]
  - Wrong technique in drug usage process [Unknown]
